FAERS Safety Report 9177964 (Version 1)
Quarter: 2013Q1

REPORT INFORMATION
  Report Type: Spontaneous
  Country: JM (occurrence: JM)
  Receive Date: 20130321
  Receipt Date: 20130321
  Transmission Date: 20140127
  Serious: Yes (Death, Other)
  Sender: FDA-Public Use
  Company Number: PHHY2013JM018382

PATIENT
  Age: 71 None
  Sex: Male

DRUGS (8)
  1. GLIVEC [Suspect]
     Indication: CHRONIC MYELOID LEUKAEMIA
     Dosage: 400 MG
  2. GLIVEC [Suspect]
     Dosage: 600 MG
     Dates: start: 200609
  3. ALLOPURINOL [Concomitant]
     Dosage: UNK UKN, UNK
  4. MULTIVITAMINS [Concomitant]
     Dosage: UNK UKN, UNK
  5. ZOSYN [Concomitant]
  6. FORTUM                                  /NET/ [Concomitant]
  7. CIPROFLOXACIN [Concomitant]
  8. MAXOLON [Concomitant]

REACTIONS (5)
  - Death [Fatal]
  - Chronic lymphocytic leukaemia transformation [Unknown]
  - Chronic myeloid leukaemia [Unknown]
  - Anaemia [Unknown]
  - Thrombocytopenia [Unknown]
